FAERS Safety Report 12877193 (Version 1)
Quarter: 2016Q4

REPORT INFORMATION
  Report Type: Spontaneous
  Country: US (occurrence: US)
  Receive Date: 20161023
  Receipt Date: 20161023
  Transmission Date: 20170207
  Serious: Yes (Life-Threatening)
  Sender: FDA-Public Use
  Company Number: None

PATIENT
  Age: 59 Year
  Sex: Female
  Weight: 81 kg

DRUGS (11)
  1. JANUVIA [Suspect]
     Active Substance: SITAGLIPTIN PHOSPHATE
     Indication: DIABETES MELLITUS
     Route: 048
     Dates: start: 20071031, end: 20080210
  2. METITOPORAL [Concomitant]
  3. EYE VITAMIN [Concomitant]
  4. NOVILIN N [Concomitant]
  5. ZANTAC [Concomitant]
     Active Substance: RANITIDINE HYDROCHLORIDE
  6. DAILY VITAMIN [Concomitant]
     Active Substance: VITAMINS
  7. NOVILIN R [Concomitant]
  8. VALSARTIN [Concomitant]
  9. VITAMIN D [Concomitant]
     Active Substance: CHOLECALCIFEROL
  10. BYETTA [Suspect]
     Active Substance: EXENATIDE
     Indication: DIABETES MELLITUS
     Route: 030
     Dates: start: 20080108, end: 20080108
  11. MEMBRANE COMPLEX [Concomitant]

REACTIONS (8)
  - Myocardial infarction [None]
  - Gallbladder disorder [None]
  - Hypertension [None]
  - Musculoskeletal pain [None]
  - Pain in extremity [None]
  - Weight increased [None]
  - Joint swelling [None]
  - Dyspepsia [None]

NARRATIVE: CASE EVENT DATE: 20080206
